FAERS Safety Report 9822412 (Version 2)
Quarter: 2014Q1

REPORT INFORMATION
  Report Type: Report from Study
  Country: US (occurrence: US)
  Receive Date: 20140116
  Receipt Date: 20140311
  Transmission Date: 20141002
  Serious: Yes (Hospitalization)
  Sender: FDA-Public Use
  Company Number: PHEH2014US001069

PATIENT
  Age: 51 Year
  Sex: Female

DRUGS (10)
  1. GILENYA [Suspect]
     Indication: MULTIPLE SCLEROSIS
     Dosage: 0.5 MG, QD
     Route: 048
     Dates: start: 20120330
  2. TOPAMAX [Concomitant]
     Indication: HEADACHE
     Dosage: 25 MG, BID
     Dates: start: 20140212
  3. LYRICA [Concomitant]
     Indication: MUSCLE SPASMS
     Dosage: 100 MG, BID
     Dates: start: 20130905
  4. AMLODIPINE [Concomitant]
     Dosage: 5 MG, QD
     Route: 048
  5. CARISOPRODOL [Concomitant]
     Dosage: 350 MG, BID
     Route: 048
  6. HYDROCODONE/ACETAMINOPHEN [Concomitant]
     Indication: PAIN
     Dosage: 2 DF, Q4H
     Route: 048
  7. LISINOPRIL [Concomitant]
     Dosage: 20 MG, BID
     Route: 048
  8. LOSARTAN [Concomitant]
     Dosage: 100 MG, QD
     Route: 048
  9. NORTRIPTYLINE [Concomitant]
     Dosage: 10 MG, TID
     Route: 048
  10. PREGABALIN [Concomitant]
     Dosage: 100 MG, TID
     Route: 048

REACTIONS (16)
  - Multiple sclerosis relapse [Recovering/Resolving]
  - Central nervous system lesion [Recovering/Resolving]
  - VIIth nerve paralysis [Recovering/Resolving]
  - Hypoaesthesia [Unknown]
  - Paraesthesia oral [Unknown]
  - Dyskinesia [Unknown]
  - Speech disorder [Unknown]
  - Hemiparesis [Recovering/Resolving]
  - Pain [Recovering/Resolving]
  - Depression [Recovering/Resolving]
  - Hypertension [Recovering/Resolving]
  - Blood glucose increased [Unknown]
  - Carbon dioxide increased [Unknown]
  - Blood chloride increased [Unknown]
  - Blood urea increased [Unknown]
  - Culture urine positive [Unknown]
